FAERS Safety Report 5164761-9 (Version None)
Quarter: 2006Q4

REPORT INFORMATION
  Report Type: 
  Country: None (occurrence: None)
  Receive Date: 20061205
  Receipt Date: 20061129
  Transmission Date: 20070319
  Serious: Yes (Other)
  Sender: FDA-Public Use
  Company Number: GB-GLAXOSMITHKLINE-B0448665A

PATIENT
  Sex: Male

DRUGS (1)
  1. SEROXAT [Suspect]
     Indication: DRUG USE FOR UNKNOWN INDICATION
     Route: 048
     Dates: start: 19980101

REACTIONS (7)
  - ANXIETY [None]
  - DEPRESSED MOOD [None]
  - INTENTIONAL SELF-INJURY [None]
  - MALAISE [None]
  - MULTIPLE DRUG OVERDOSE INTENTIONAL [None]
  - NERVOUSNESS [None]
  - PERSONALITY CHANGE [None]
